FAERS Safety Report 18095889 (Version 1)
Quarter: 2020Q3

REPORT INFORMATION
  Report Type: Spontaneous
  Country: US (occurrence: US)
  Receive Date: 20200730
  Receipt Date: 20200730
  Transmission Date: 20201103
  Serious: Yes (Death, Hospitalization, Disabling, Other)
  Sender: FDA-Public Use
  Company Number: US-PURDUE-USA-2020-0160105

PATIENT
  Sex: Female

DRUGS (2)
  1. DILAUDID [Suspect]
     Active Substance: HYDROMORPHONE HYDROCHLORIDE
     Indication: POST PROCEDURAL COMPLICATION
     Dosage: UNKNOWN
     Route: 048
  2. OXYCONTIN [Suspect]
     Active Substance: OXYCODONE HYDROCHLORIDE
     Indication: POST PROCEDURAL COMPLICATION
     Dosage: UNKNOWN
     Route: 048

REACTIONS (11)
  - Death [Fatal]
  - Disability [Unknown]
  - Imprisonment [Unknown]
  - Drug dependence [Unknown]
  - Road traffic accident [Unknown]
  - Legal problem [Unknown]
  - Pneumonia aspiration [Unknown]
  - Behaviour disorder [Unknown]
  - Overdose [Unknown]
  - Coma [Unknown]
  - Drug abuse [Unknown]
